FAERS Safety Report 25899308 (Version 1)
Quarter: 2025Q4

REPORT INFORMATION
  Report Type: Spontaneous
  Country: GB (occurrence: GB)
  Receive Date: 20251009
  Receipt Date: 20251009
  Transmission Date: 20260119
  Serious: Yes (Other)
  Sender: ALKEM
  Company Number: None

PATIENT
  Age: 75 Year
  Sex: Male
  Weight: 63 kg

DRUGS (2)
  1. MYCOPHENOLATE MOFETIL [Interacting]
     Active Substance: MYCOPHENOLATE MOFETIL
     Indication: Immunosuppressant drug therapy
     Dosage: UNK
     Route: 065
  2. AMOXICILLIN [Interacting]
     Active Substance: AMOXICILLIN
     Indication: Myasthenia gravis
     Dosage: UNK (3 DAYS OF A 5 DAYS COURSE)
     Route: 065

REACTIONS (5)
  - Diplopia [Recovering/Resolving]
  - Drug interaction [Unknown]
  - Myasthenia gravis [Recovering/Resolving]
  - Eyelid ptosis [Recovering/Resolving]
  - Dyspnoea [Recovering/Resolving]

NARRATIVE: CASE EVENT DATE: 20250717
